FAERS Safety Report 9103048 (Version 1)
Quarter: 2013Q1

REPORT INFORMATION
  Report Type: Spontaneous
  Country: FR (occurrence: FR)
  Receive Date: 20130218
  Receipt Date: 20130218
  Transmission Date: 20140127
  Serious: Yes (Other)
  Sender: FDA-Public Use
  Company Number: FR-ELI_LILLY_AND_COMPANY-FR201302002276

PATIENT
  Age: 77 Year
  Sex: Female

DRUGS (1)
  1. FORSTEO [Suspect]
     Dosage: 20 UG, QD
     Route: 058
     Dates: start: 20121128

REACTIONS (4)
  - Hepatic cyst [Unknown]
  - Pancreatic cyst [Unknown]
  - Splenic cyst [Unknown]
  - Pain in extremity [Unknown]
